FAERS Safety Report 8462358-6 (Version None)
Quarter: 2012Q2

REPORT INFORMATION
  Report Type: 
  Country: None (occurrence: None)
  Receive Date: 20120625
  Receipt Date: 20120619
  Transmission Date: 20120825
  Serious: No
  Sender: FDA-Public Use
  Company Number: US-B.I. PHARMACEUTICALS,INC./RIDGEFIELD-2012-BP-14095BP

PATIENT
  Age: 48 Year
  Sex: Female

DRUGS (2)
  1. JENTADUETO [Suspect]
     Indication: TYPE 2 DIABETES MELLITUS
  2. ADIPEX [Concomitant]

REACTIONS (2)
  - DEPRESSED MOOD [None]
  - FATIGUE [None]
